FAERS Safety Report 6520861-X (Version None)
Quarter: 2009Q4

REPORT INFORMATION
  Report Type: 
  Country: None (occurrence: None)
  Receive Date: 20091229
  Receipt Date: 20091218
  Transmission Date: 20100525
  Serious: Yes (Other)
  Sender: FDA-Public Use
  Company Number: IN-JNJFOC-20091205938

PATIENT
  Age: 24 Year
  Sex: Female

DRUGS (5)
  1. RISPERIDONE [Suspect]
     Indication: PSYCHOTIC DISORDER
     Route: 065
  2. OLANZAPINE [Suspect]
     Indication: DRUG USE FOR UNKNOWN INDICATION
     Route: 065
  3. TRIHEXYPHENIDYL HCL [Concomitant]
     Indication: PSYCHOTIC DISORDER
     Dosage: 4-6 MG
     Route: 065
  4. TRIHEXYPHENIDYL HCL [Concomitant]
     Dosage: 4-6 MG
     Route: 065
  5. TRIHEXYPHENIDYL HCL [Concomitant]
     Route: 065

REACTIONS (1)
  - PLEUROTHOTONUS [None]
